FAERS Safety Report 4599096-6 (Version None)
Quarter: 2005Q1

REPORT INFORMATION
  Report Type: 
  Country: None (occurrence: None)
  Receive Date: 20050302
  Receipt Date: 20050216
  Transmission Date: 20050727
  Serious: Yes (Other)
  Sender: FDA-Public Use
  Company Number: US014711

PATIENT
  Age: 56 Year
  Sex: Male
  Weight: 83.4 kg

DRUGS (8)
  1. FENTANYL CITRATE [Suspect]
     Indication: CANCER PAIN
     Dosage: 1600 UG PRN ORAL
     Route: 048
     Dates: start: 20050212, end: 20050215
  2. GABAPENTIN [Suspect]
     Indication: PAIN
     Dosage: 600 MG DAILY
     Dates: start: 20040101, end: 20050215
  3. CAPECITABINE [Suspect]
     Indication: PROPHYLAXIS
     Dosage: 2.5 GR DAILY
     Dates: start: 20040101
  4. OXYCONTIN [Concomitant]
  5. ACETAMINOPHEN [Concomitant]
  6. DEXAMETHASONE [Concomitant]
  7. LANSOPRAZOLE [Concomitant]
  8. LAXOBERAL [Concomitant]

REACTIONS (4)
  - COMMUNICATION DISORDER [None]
  - DISORIENTATION [None]
  - DRUG INTERACTION [None]
  - DRUG TOXICITY [None]
